FAERS Safety Report 9335423 (Version 2)
Quarter: 2013Q3

REPORT INFORMATION
  Report Type: Report from Study
  Country: BR (occurrence: BR)
  Receive Date: 20130605
  Receipt Date: 20130816
  Transmission Date: 20140515
  Serious: Yes (Other)
  Sender: FDA-Public Use
  Company Number: PHHY2013BR048336

PATIENT
  Age: 46 Year
  Sex: Female
  Weight: 63 kg

DRUGS (2)
  1. DIOVAN [Suspect]
     Indication: HYPERTENSION
     Dosage: 1 DF (160MG), QD
     Route: 048
     Dates: end: 20130506
  2. DIOVAN [Suspect]
     Dosage: 1 DF (80MG), DAILY
     Route: 048
     Dates: start: 20130509, end: 20130516

REACTIONS (8)
  - Carotid arteriosclerosis [Unknown]
  - Blood pressure increased [Recovered/Resolved]
  - Headache [Recovered/Resolved]
  - Somnolence [Recovered/Resolved]
  - Blood cholesterol abnormal [Unknown]
  - Chills [Recovered/Resolved]
  - Hypersomnia [Recovered/Resolved]
  - Hypotension [Recovered/Resolved]
